FAERS Safety Report 24092121 (Version 2)
Quarter: 2024Q3

REPORT INFORMATION
  Report Type: Spontaneous
  Country: FI (occurrence: FI)
  Receive Date: 20240715
  Receipt Date: 20240723
  Transmission Date: 20241017
  Serious: Yes (Other)
  Sender: REGENERON
  Company Number: FI-BAYER-2024A098712

PATIENT
  Age: 55 Year
  Sex: Female

DRUGS (2)
  1. EYLEA [Suspect]
     Active Substance: AFLIBERCEPT
     Indication: Product used for unknown indication
     Dosage: 0.05 ML, ONCE (RIGHT EYE), 40 MG/ML
     Route: 031
     Dates: start: 20231007
  2. EYLEA [Suspect]
     Active Substance: AFLIBERCEPT
     Dosage: 0.05 ML, 40 MG/ML
     Route: 031
     Dates: start: 20231009, end: 20231009

REACTIONS (4)
  - Hemiplegia [Unknown]
  - Basal ganglia infarction [Unknown]
  - Cerebrovascular accident [Unknown]
  - Injection site pain [Recovered/Resolved]

NARRATIVE: CASE EVENT DATE: 20231009
